FAERS Safety Report 8126007-9 (Version None)
Quarter: 2012Q1

REPORT INFORMATION
  Report Type: 
  Country: None (occurrence: None)
  Receive Date: 20120209
  Receipt Date: 20120127
  Transmission Date: 20120608
  Serious: Yes (Other)
  Sender: FDA-Public Use
  Company Number: FR-ROCHE-794036

PATIENT
  Sex: Female
  Weight: 56 kg

DRUGS (17)
  1. LEXOMIL [Concomitant]
     Dosage: DRUG:LEXOMIL 6 MG,TDD:1/2 TABLET
  2. LORAZEPAM [Concomitant]
  3. AVASTIN [Suspect]
     Indication: GLIOBLASTOMA
     Dosage: CYCLIC
     Route: 042
     Dates: start: 20110706, end: 20110706
  4. TEMOZOLOMIDE [Suspect]
     Indication: GLIOBLASTOMA
     Route: 042
  5. TEMOZOLOMIDE [Suspect]
     Route: 048
     Dates: start: 20101023, end: 20101105
  6. LASIX [Concomitant]
  7. TEMOZOLOMIDE [Suspect]
     Indication: GLIOBLASTOMA
     Dosage: LAST DOSE PRIOR TO SAE:03 MAY 2011
     Route: 048
  8. AMITRIPTYLINE HCL [Concomitant]
  9. RABEPRAZOLE SODIUM [Concomitant]
  10. LYRICA [Concomitant]
  11. DURAGESIC-100 [Concomitant]
     Dosage: DRUG: DUROGESIC 50 UG
  12. TEMOZOLOMIDE [Suspect]
     Dosage: 5 DAYS PER 28 DAYS FIRST COURSE.
     Route: 048
     Dates: start: 20101208, end: 20110503
  13. TEMOZOLOMIDE [Suspect]
     Dosage: 5 DAYS PER 28 DAYS SECOND COURSE. TOTAL CUMULATIVE  DOSE11040MG FIFITH
     Route: 048
  14. CARMUSTINE [Suspect]
     Indication: GLIOBLASTOMA
     Route: 065
  15. LEVOTHYROXINE SODIUM [Concomitant]
  16. CITALOPRAM HYDROBROMIDE [Concomitant]
  17. LOVENOX [Concomitant]
     Dosage: DRUG:LOVENOX 0.4 ML, TDD:1/D

REACTIONS (3)
  - CYTOLYTIC HEPATITIS [None]
  - TUMOUR HAEMORRHAGE [None]
  - NEUTROPENIA [None]
